FAERS Safety Report 8730281 (Version 3)
Quarter: 2014Q2

REPORT INFORMATION
  Report Type: Spontaneous
  Country: US (occurrence: US)
  Receive Date: 20120817
  Receipt Date: 20131024
  Transmission Date: 20141212
  Serious: No
  Sender: FDA-Public Use
  Company Number: US-PFIZER INC-2012198396

PATIENT
  Age: 57 Year
  Sex: Female
  Weight: 51.7 kg

DRUGS (2)
  1. PREMPRO [Suspect]
     Indication: HOT FLUSH
     Dosage: 0.625 MG, UNK
  2. PREMPRO [Suspect]
     Dosage: 1 DF (0.45 MG/ 1.5 MG), DAILY
     Route: 048
     Dates: start: 20120509, end: 20120810

REACTIONS (1)
  - Fungal infection [Recovered/Resolved]
